APPROVED DRUG PRODUCT: METHOCARBAMOL AND ASPIRIN
Active Ingredient: ASPIRIN; METHOCARBAMOL
Strength: 325MG;400MG
Dosage Form/Route: TABLET;ORAL
Application: A089657 | Product #001
Applicant: PAR PHARMACEUTICAL INC
Approved: Nov 4, 1988 | RLD: No | RS: No | Type: DISCN